FAERS Safety Report 18654301 (Version 1)
Quarter: 2020Q4

REPORT INFORMATION
  Report Type: Spontaneous
  Country: US (occurrence: US)
  Receive Date: 20201223
  Receipt Date: 20201223
  Transmission Date: 20210114
  Serious: Yes (Hospitalization)
  Sender: FDA-Public Use
  Company Number: None

PATIENT
  Age: 58 Year
  Sex: Female
  Weight: 117 kg

DRUGS (19)
  1. CALCIUM CARBONATE (CALTRATE 600) [Concomitant]
  2. BROVANA [Concomitant]
     Active Substance: ARFORMOTEROL TARTRATE
  3. BREO ELLIPTA [Concomitant]
     Active Substance: FLUTICASONE FUROATE\VILANTEROL TRIFENATATE
  4. CONVALESCENT PLASMA [Concomitant]
     Active Substance: HUMAN PLASMA
  5. CYMBALTA [Concomitant]
     Active Substance: DULOXETINE HYDROCHLORIDE
  6. DOXYCYCLINE. [Concomitant]
     Active Substance: DOXYCYCLINE
  7. TRAZODONE [Concomitant]
     Active Substance: TRAZODONE HYDROCHLORIDE
  8. ENOXAPARIN [Concomitant]
     Active Substance: ENOXAPARIN
  9. REMDESIVIR. [Concomitant]
     Active Substance: REMDESIVIR
  10. ROCEPHIN [Concomitant]
     Active Substance: CEFTRIAXONE SODIUM
  11. ZITHROMAX [Concomitant]
     Active Substance: AZITHROMYCIN DIHYDRATE
  12. PULMICORT TURBUHALER [Concomitant]
     Active Substance: BUDESONIDE
  13. CITRIZINE [Concomitant]
  14. OMEPRAZONLE [Concomitant]
  15. PREDNISONE. [Concomitant]
     Active Substance: PREDNISONE
  16. DECADRON [Concomitant]
     Active Substance: DEXAMETHASONE
  17. MICARDIS [Concomitant]
     Active Substance: TELMISARTAN
  18. DUO-NEB [Concomitant]
  19. BAMLANIVIMAB. [Suspect]
     Active Substance: BAMLANIVIMAB
     Indication: SARS-COV-2 ANTIBODY TEST POSITIVE
     Route: 042
     Dates: start: 20201217, end: 20201217

REACTIONS (3)
  - Pneumonia pneumococcal [None]
  - Respiratory failure [None]
  - Asthma [None]

NARRATIVE: CASE EVENT DATE: 20201217
